FAERS Safety Report 5153405-8 (Version None)
Quarter: 2006Q4

REPORT INFORMATION
  Report Type: 
  Country: None (occurrence: None)
  Receive Date: 20061114
  Receipt Date: 20060829
  Transmission Date: 20070319
  Serious: Yes (Life-Threatening, Hospitalization)
  Sender: FDA-Public Use
  Company Number: 36272

PATIENT
  Age: 50 Year
  Sex: Female

DRUGS (1)
  1. FLUORESCITE 10% INJECTION [Suspect]
     Indication: ANGIOGRAM
     Dosage: 4 ML ONCE, IV
     Route: 042
     Dates: start: 20060825, end: 20060825

REACTIONS (4)
  - GENERALISED ERYTHEMA [None]
  - RASH ERYTHEMATOUS [None]
  - SHOCK [None]
  - TREMOR [None]
